FAERS Safety Report 5049868-9 (Version None)
Quarter: 2006Q3

REPORT INFORMATION
  Report Type: 
  Country: None (occurrence: None)
  Receive Date: 20060706
  Receipt Date: 20060622
  Transmission Date: 20061208
  Serious: Yes (Other)
  Sender: FDA-Public Use
  Company Number: GXKR2006US03513

PATIENT
  Age: 54 Year
  Sex: Male
  Weight: 65 kg

DRUGS (11)
  1. THIAMAZOLE (NGX) (THIAMAZOLE) [Suspect]
     Indication: BASEDOW'S DISEASE
     Dosage: SEE IMAGE
     Dates: start: 20030306, end: 20030728
  2. THIAMAZOLE (NGX) (THIAMAZOLE) [Suspect]
     Indication: BASEDOW'S DISEASE
     Dosage: SEE IMAGE
     Dates: start: 20030728, end: 20030819
  3. THIAMAZOLE (NGX) (THIAMAZOLE) [Suspect]
     Indication: BASEDOW'S DISEASE
     Dosage: SEE IMAGE
     Dates: start: 20030824, end: 20030828
  4. THIAMAZOLE (NGX) (THIAMAZOLE) [Suspect]
     Indication: BASEDOW'S DISEASE
     Dosage: SEE IMAGE
     Dates: start: 20030828, end: 20031105
  5. THIAMAZOLE (NGX) (THIAMAZOLE) [Suspect]
     Indication: BASEDOW'S DISEASE
     Dosage: SEE IMAGE
     Dates: start: 20031105, end: 20040324
  6. WARFARIN SODIUM [Suspect]
     Indication: ATRIAL FIBRILLATION
     Dosage: 5 MG, QD
     Dates: start: 20030306, end: 20030826
  7. WARFARIN SODIUM [Suspect]
     Indication: ATRIAL FIBRILLATION
     Dosage: 5 MG, QD
     Dates: start: 20030828, end: 20030908
  8. WARFARIN SODIUM [Suspect]
     Indication: ATRIAL FIBRILLATION
     Dosage: 5 MG, QD
     Dates: start: 20030908, end: 20040113
  9. METOPROLOL TARTRATE [Concomitant]
  10. DEXAMETHASONE TAB [Concomitant]
  11. SIMVASTATIN [Concomitant]

REACTIONS (3)
  - DRUG INTERACTION [None]
  - HYPOTHYROIDISM [None]
  - INTERNATIONAL NORMALISED RATIO FLUCTUATION [None]
